FAERS Safety Report 11285556 (Version 1)
Quarter: 2015Q3

REPORT INFORMATION
  Report Type: Spontaneous
  Country: US (occurrence: US)
  Receive Date: 20150720
  Receipt Date: 20150720
  Transmission Date: 20151125
  Serious: No
  Sender: FDA-Public Use
  Company Number: US-PRINSTON PHARMACEUTICAL INC.-2015PRN00040

PATIENT
  Sex: Female
  Weight: 45.35 kg

DRUGS (1)
  1. IRBESARTAN. [Suspect]
     Active Substance: IRBESARTAN
     Dosage: 150 MG, 1X/DAY
     Route: 048
     Dates: start: 201505

REACTIONS (5)
  - Pruritus [Unknown]
  - Wound secretion [Unknown]
  - Blister [Not Recovered/Not Resolved]
  - Herpes zoster [Unknown]
  - Burning sensation [Unknown]
